FAERS Safety Report 20004222 (Version 1)
Quarter: 2021Q4

REPORT INFORMATION
  Report Type: Spontaneous
  Country: GB (occurrence: GB)
  Receive Date: 20211027
  Receipt Date: 20211027
  Transmission Date: 20220303
  Serious: Yes (Hospitalization, Disabling, Other)
  Sender: FDA-Public Use
  Company Number: None

PATIENT
  Sex: Male

DRUGS (1)
  1. CIPROFLOXACIN [Suspect]
     Active Substance: CIPROFLOXACIN
     Indication: Epididymitis
     Dosage: UNK
     Dates: start: 20210925, end: 20210926

REACTIONS (18)
  - Tendon pain [Unknown]
  - Arthralgia [Unknown]
  - Paraesthesia [Unknown]
  - Sudden hearing loss [Unknown]
  - Tinnitus [Unknown]
  - Dysphagia [Recovered/Resolved]
  - Pharyngeal swelling [Recovered/Resolved]
  - Vision blurred [Unknown]
  - Cyanosis [Recovered/Resolved]
  - Dysuria [Unknown]
  - Areflexia [Unknown]
  - Abdominal pain upper [Recovering/Resolving]
  - Feeding disorder [Unknown]
  - Gastrointestinal pain [Recovering/Resolving]
  - Nerve injury [Unknown]
  - Tendon injury [Unknown]
  - Ligament injury [Unknown]
  - Joint injury [Unknown]

NARRATIVE: CASE EVENT DATE: 20210926
